FAERS Safety Report 10706914 (Version 2)
Quarter: 2015Q1

REPORT INFORMATION
  Report Type: Report from Study
  Country: TR (occurrence: TR)
  Receive Date: 20150113
  Receipt Date: 20150123
  Transmission Date: 20150721
  Serious: Yes (Other)
  Sender: FDA-Public Use
  Company Number: TR-EMD SERONO-8004186

PATIENT
  Age: 32 Year
  Sex: Female
  Weight: 63 kg

DRUGS (2)
  1. REBIF [Suspect]
     Active Substance: INTERFERON BETA-1A
     Indication: MULTIPLE SCLEROSIS
     Dates: start: 2007, end: 2012
  2. REBIF [Suspect]
     Active Substance: INTERFERON BETA-1A
     Dates: start: 201409

REACTIONS (5)
  - Autoimmune thyroiditis [Unknown]
  - Blood thyroid stimulating hormone increased [Unknown]
  - Memory impairment [Not Recovered/Not Resolved]
  - Tri-iodothyronine free decreased [Unknown]
  - Injection site bruising [Not Recovered/Not Resolved]

NARRATIVE: CASE EVENT DATE: 2008
